FAERS Safety Report 12634941 (Version 1)
Quarter: 2016Q3

REPORT INFORMATION
  Report Type: Spontaneous
  Country: US (occurrence: None)
  Receive Date: 20160808
  Receipt Date: 20160808
  Transmission Date: 20161109
  Serious: Yes (Hospitalization)
  Sender: FDA-Public Use
  Company Number: None

PATIENT
  Age: 55 Year
  Weight: 85.73 kg

DRUGS (4)
  1. MULTY VITAMINS [Concomitant]
  2. LISINOPRIL. [Concomitant]
     Active Substance: LISINOPRIL
  3. TORADOL [Suspect]
     Active Substance: KETOROLAC TROMETHAMINE
     Indication: ARTHRALGIA
     Dosage: INTO THE MUSCLE
     Route: 030
     Dates: start: 20160728, end: 20160728
  4. ATENOLOL. [Concomitant]
     Active Substance: ATENOLOL

REACTIONS (14)
  - Nausea [None]
  - Abdominal pain upper [None]
  - Abdominal distension [None]
  - Constipation [None]
  - Hyperhidrosis [None]
  - Vomiting [None]
  - Headache [None]
  - Abdominal discomfort [None]
  - Diarrhoea [None]
  - Dizziness [None]
  - Somnolence [None]
  - Tinnitus [None]
  - Dyspepsia [None]
  - Flatulence [None]

NARRATIVE: CASE EVENT DATE: 20160804
